FAERS Safety Report 4822556-7 (Version None)
Quarter: 2005Q4

REPORT INFORMATION
  Report Type: 
  Country: None (occurrence: None)
  Receive Date: 20051104
  Receipt Date: 20051104
  Transmission Date: 20060501
  Serious: Yes (Death, Hospitalization)
  Sender: FDA-Public Use
  Company Number: None

PATIENT
  Sex: Male
  Weight: 13.1 kg

DRUGS (5)
  1. DOXORUBICIN HYDROCHLORIDE [Suspect]
     Indication: PRECURSOR B-LYMPHOBLASTIC LYMPHOMA
     Dosage: SEE IMAGE
     Dates: start: 20051006, end: 20051020
  2. METHOTREXATE [Suspect]
     Dosage: SEE IMAGE
     Dates: start: 20051006, end: 20051020
  3. PEG-L-ASPARAGINASE {-H) [Suspect]
     Dosage: SEE IMAGE
     Dates: start: 20051010, end: 20051010
  4. PEG-L-ASPARAGINASE {-H) [Suspect]
     Dosage: SEE IMAGE
     Dates: start: 20051006
  5. VINCRISTINE SULFATE [Suspect]
     Dosage: SEE IMAGE
     Dates: start: 20051006, end: 20051020

REACTIONS (5)
  - COAGULOPATHY [None]
  - DYSPNOEA [None]
  - GENERAL PHYSICAL HEALTH DETERIORATION [None]
  - HYPOXIA [None]
  - RENAL FAILURE [None]
